FAERS Safety Report 15338737 (Version 1)
Quarter: 2018Q3

REPORT INFORMATION
  Report Type: Spontaneous
  Country: US (occurrence: US)
  Receive Date: 20180827
  Receipt Date: 20180827
  Transmission Date: 20181010
  Serious: No
  Sender: FDA-Public Use
  Company Number: None

PATIENT
  Age: 70 Year
  Sex: Male

DRUGS (4)
  1. ZYTIGA [Suspect]
     Active Substance: ABIRATERONE ACETATE
     Indication: PROSTATE CANCER
     Route: 048
     Dates: start: 20180531
  2. PREDNISONE. [Concomitant]
     Active Substance: PREDNISONE
  3. CARBOPLATIN. [Concomitant]
     Active Substance: CARBOPLATIN
  4. XXGEVA [Concomitant]

REACTIONS (1)
  - Drug ineffective [None]
